FAERS Safety Report 4791694-X (Version None)
Quarter: 2005Q4

REPORT INFORMATION
  Report Type: 
  Country: None (occurrence: None)
  Receive Date: 20051007
  Receipt Date: 20050527
  Transmission Date: 20060501
  Serious: Yes (Hospitalization)
  Sender: FDA-Public Use
  Company Number: FR-GLAXOSMITHKLINE-B0383582A

PATIENT
  Age: 22 Year
  Sex: Female

DRUGS (16)
  1. IMUREL [Suspect]
     Dosage: 100MG PER DAY
     Route: 048
     Dates: start: 20031015, end: 20050420
  2. CORTANCYL [Suspect]
     Dosage: 16MG PER DAY
     Route: 048
  3. SANDOSTATIN [Suspect]
     Dosage: 10MG PER DAY
     Route: 065
     Dates: start: 20050303, end: 20050420
  4. FLAGYL [Suspect]
     Route: 065
     Dates: start: 20050422, end: 20050427
  5. AUGMENTIN '125' [Suspect]
     Route: 065
     Dates: start: 20050422, end: 20050427
  6. FOSAMAX [Suspect]
     Route: 065
     Dates: end: 20050420
  7. LEVOTHYROX [Suspect]
     Route: 065
     Dates: end: 20050420
  8. ISOPTIN [Suspect]
     Route: 065
     Dates: end: 20050420
  9. EUPRESSYL [Suspect]
     Route: 065
     Dates: end: 20050420
  10. CORVASAL [Suspect]
     Route: 065
     Dates: end: 20050420
  11. SPECIAFOLDINE [Suspect]
     Route: 065
     Dates: end: 20050420
  12. CLONAZEPAM [Suspect]
     Route: 065
     Dates: end: 20050420
  13. NOROXIN [Suspect]
     Route: 065
     Dates: end: 20050420
  14. DEBRIDAT [Suspect]
     Route: 065
     Dates: end: 20050420
  15. TRACLEER [Suspect]
     Route: 065
     Dates: end: 20050420
  16. OROCAL D3 [Suspect]
     Dates: end: 20050420

REACTIONS (2)
  - HEPATITIS [None]
  - PANCREATITIS ACUTE [None]
